FAERS Safety Report 5282992-4 (Version None)
Quarter: 2007Q1

REPORT INFORMATION
  Report Type: 
  Country: None (occurrence: None)
  Receive Date: 20070328
  Receipt Date: 20070328
  Transmission Date: 20070707
  Serious: Yes (Other)
  Sender: FDA-Public Use
  Company Number: None

PATIENT
  Age: 74 Year
  Sex: Male
  Weight: 107 kg

DRUGS (13)
  1. DOXYCYCLINE [Suspect]
  2. METHYLPREDNISOLONE ACET. [Concomitant]
  3. AMOXICILLIN [Concomitant]
  4. DIPHENHYDRAMINE HCL [Concomitant]
  5. METHYLPREDNISOLONE 16MG TAB [Concomitant]
  6. ALLOPURINOL [Concomitant]
  7. CAPTOPRIL [Concomitant]
  8. BETAMETHASONE DIPROPIONATE [Concomitant]
  9. DERMA CERIN [Concomitant]
  10. GABAPENTIN [Concomitant]
  11. ALBUTEROL/IPRATROP [Concomitant]
  12. GEMFIBROZIL [Concomitant]
  13. METRONIDAZOLE [Concomitant]

REACTIONS (2)
  - DYSPNOEA [None]
  - LIP SWELLING [None]
